FAERS Safety Report 9322409 (Version 4)
Quarter: 2013Q3

REPORT INFORMATION
  Report Type: Spontaneous
  Country: US (occurrence: US)
  Receive Date: 20130531
  Receipt Date: 20130702
  Transmission Date: 20140515
  Serious: Yes (Other)
  Sender: FDA-Public Use
  Company Number: CHPA2013US009163

PATIENT
  Age: 85 Year
  Sex: Male

DRUGS (3)
  1. EX-LAX REG STR LAX PILLS SENNA [Suspect]
     Indication: CONSTIPATION
     Dosage: 2 DF, ONCE/SINGLE
     Route: 048
  2. EX-LAX REG STR LAX PILLS SENNA [Suspect]
     Dosage: 2 DF, ONCE/SINGLE
     Route: 048
     Dates: start: 20130529, end: 20130529
  3. GAS-X [Concomitant]
     Indication: FLATULENCE
     Dosage: UNK, UNK

REACTIONS (3)
  - Carcinoid tumour [Recovered/Resolved]
  - Constipation [Recovered/Resolved]
  - Drug ineffective [Unknown]
